FAERS Safety Report 17281892 (Version 1)
Quarter: 2020Q1

REPORT INFORMATION
  Report Type: Spontaneous
  Country: US (occurrence: US)
  Receive Date: 20191228
  Receipt Date: 20191228
  Transmission Date: 20200409
  Serious: Yes (Hospitalization)
  Sender: FDA-Public Use
  Company Number: None

PATIENT
  Sex: Male
  Weight: 82.9 kg

DRUGS (3)
  1. ETOPOSIDE(VP-16) [Concomitant]
     Active Substance: ETOPOSIDE
  2. CISPLATIN. [Concomitant]
     Active Substance: CISPLATIN
  3. BLEOMYCIN [Suspect]
     Active Substance: BLEOMYCIN SULFATE
     Dosage: ?          OTHER STRENGTH:60 UNITS;OTHER DOSE:60 UNITS;?
     Dates: start: 20191220

REACTIONS (4)
  - White blood cell count increased [None]
  - Asthenia [None]
  - Body temperature increased [None]
  - Nausea [None]

NARRATIVE: CASE EVENT DATE: 20191227
